FAERS Safety Report 17749325 (Version 1)
Quarter: 2020Q2

REPORT INFORMATION
  Report Type: Report from Study
  Country: None (occurrence: US)
  Receive Date: 20200505
  Receipt Date: 20200505
  Transmission Date: 20200714
  Serious: Yes (Other)
  Sender: FDA-Public Use
  Company Number: US-ABBVIE-19K-163-2950759-00

PATIENT
  Sex: Female

DRUGS (4)
  1. SPIRONOLACTONE. [Concomitant]
     Active Substance: SPIRONOLACTONE
     Indication: POLYCYSTIC OVARIES
  2. BIOTIN [Concomitant]
     Active Substance: BIOTIN
     Indication: SUPPLEMENTATION THERAPY
  3. HUMIRA [Suspect]
     Active Substance: ADALIMUMAB
     Indication: HIDRADENITIS
     Dosage: CITRATE FREE
     Route: 058
     Dates: start: 201904, end: 20200129
  4. MAGNESIUM [Concomitant]
     Active Substance: MAGNESIUM
     Indication: MINERAL SUPPLEMENTATION

REACTIONS (19)
  - Tonsillitis [Unknown]
  - Dysmenorrhoea [Unknown]
  - Tonsillar hypertrophy [Unknown]
  - Abdominal pain [Unknown]
  - Endometrial hyperplasia [Unknown]
  - Nasal septum deviation [Recovered/Resolved]
  - Injection site urticaria [Recovered/Resolved]
  - Injection site pruritus [Recovered/Resolved]
  - Polycystic ovaries [Unknown]
  - Injection site pain [Recovered/Resolved]
  - Chest discomfort [Recovered/Resolved]
  - Dermatitis allergic [Not Recovered/Not Resolved]
  - Nasal obstruction [Recovered/Resolved]
  - Lymphadenopathy [Unknown]
  - Dyspnoea [Recovered/Resolved]
  - Surgery [Recovered/Resolved]
  - Haemorrhage [Unknown]
  - Exostosis [Recovered/Resolved]
  - Urticaria [Not Recovered/Not Resolved]

NARRATIVE: CASE EVENT DATE: 2019
